FAERS Safety Report 5212682-5 (Version None)
Quarter: 2007Q1

REPORT INFORMATION
  Report Type: 
  Country: None (occurrence: None)
  Receive Date: 20061115
  Receipt Date: 20060920
  Transmission Date: 20070707
  Serious: No
  Sender: FDA-Public Use
  Company Number: 200612099BWH

PATIENT
  Age: 55 Year
  Sex: Male

DRUGS (3)
  1. NEXAVAR [Suspect]
     Indication: METASTATIC RENAL CELL CARCINOMA
     Dosage: 400 MG, BID, ORAL
     Route: 048
     Dates: start: 20060301
  2. ACIDOPHILUS [Concomitant]
  3. TETRACYCLINE [Concomitant]

REACTIONS (9)
  - ABDOMINAL PAIN [None]
  - BOWEL SOUNDS ABNORMAL [None]
  - DERMATITIS ACNEIFORM [None]
  - DIARRHOEA [None]
  - HERPES ZOSTER [None]
  - HYPERSENSITIVITY [None]
  - LIP SWELLING [None]
  - MUSCLE SPASMS [None]
  - PAIN IN EXTREMITY [None]
